FAERS Safety Report 26073119 (Version 1)
Quarter: 2025Q4

REPORT INFORMATION
  Report Type: Spontaneous
  Country: US (occurrence: US)
  Receive Date: 20251121
  Receipt Date: 20251121
  Transmission Date: 20260119
  Serious: No
  Sender: CIPLA
  Company Number: US-CIPLA LTD.-2025US14409

PATIENT

DRUGS (3)
  1. ALBUTEROL [Suspect]
     Active Substance: ALBUTEROL
     Indication: Asthma
     Dosage: 180 MICROGRAM, PRN EVERY 4 TO 6 HOURS AS NEEDED (REGULAR USER)
     Dates: start: 202508
  2. ALBUTEROL [Suspect]
     Active Substance: ALBUTEROL
     Dosage: 180 MICROGRAM, PRN EVERY 4 TO 6 HOURS AS NEEDED
     Dates: start: 202511
  3. NORELGESTROMIN [Concomitant]
     Active Substance: NORELGESTROMIN
     Indication: Oral contraception
     Dosage: 1 DOSAGE FORM, EVERY 3 WEEKS AND IN FOURTH WEEK THE PATIENT
     Route: 065

REACTIONS (3)
  - Drug dose omission by device [Unknown]
  - Device delivery system issue [Unknown]
  - Device issue [Unknown]

NARRATIVE: CASE EVENT DATE: 20251105
